FAERS Safety Report 9825447 (Version 2)
Quarter: 2013Q4

REPORT INFORMATION
  Report Type: Spontaneous
  Country: US (occurrence: None)
  Receive Date: 20131223
  Receipt Date: 20131223
  Transmission Date: 20140711
  Serious: Yes (Other)
  Sender: FDA-Public Use
  Company Number: 219320LEO

PATIENT
  Sex: Female

DRUGS (7)
  1. PICATO GEL [Suspect]
     Indication: ACTINIC KERATOSIS
     Route: 061
     Dates: start: 20121001, end: 20121003
  2. PICATO GEL [Suspect]
     Indication: BASAL CELL CARCINOMA
     Route: 061
     Dates: start: 20121001, end: 20121003
  3. PICATO GEL [Suspect]
     Indication: SQUAMOUS CELL CARCINOMA
     Route: 061
     Dates: start: 20121001, end: 20121003
  4. SINGULAIR [Concomitant]
  5. LOVASTATIN [Concomitant]
  6. ACTIVELLA [Concomitant]
  7. EFUDEX (FLUOROURACIL) [Concomitant]

REACTIONS (12)
  - Application site pain [None]
  - Application site erythema [None]
  - Application site swelling [None]
  - Wound drainage [None]
  - Application site erosion [None]
  - Application site erosion [None]
  - Application site exfoliation [None]
  - Application site scab [None]
  - Drug administered at inappropriate site [None]
  - Eyelid oedema [None]
  - Off label use [None]
  - Inappropriate schedule of drug administration [None]
